FAERS Safety Report 6415307-6 (Version None)
Quarter: 2009Q4

REPORT INFORMATION
  Report Type: 
  Country: None (occurrence: None)
  Receive Date: 20091027
  Receipt Date: 20091014
  Transmission Date: 20100525
  Serious: Yes (Other)
  Sender: FDA-Public Use
  Company Number: PHHY2009CA43873

PATIENT

DRUGS (3)
  1. DIOVAN [Suspect]
     Dosage: 80 MG DAILY
  2. BETA BLOCKING AGENTS [Concomitant]
  3. ACETYLSALICYLIC ACID [Concomitant]

REACTIONS (3)
  - ANGINA PECTORIS [None]
  - BLOOD PRESSURE DIASTOLIC DECREASED [None]
  - CHEST PAIN [None]
